FAERS Safety Report 4534726-6 (Version None)
Quarter: 2004Q4

REPORT INFORMATION
  Report Type: 
  Country: None (occurrence: None)
  Receive Date: 20041222
  Receipt Date: 20031216
  Transmission Date: 20050328
  Serious: No
  Sender: FDA-Public Use
  Company Number: US-BRISTOL-MYERS SQUIBB COMPANY-12459301

PATIENT
  Age: 77 Year
  Sex: Male
  Weight: 75 kg

DRUGS (2)
  1. PRAVACHOL [Suspect]
     Indication: CARDIAC OPERATION
     Route: 048
     Dates: start: 20021101
  2. COUMADIN [Concomitant]

REACTIONS (1)
  - MYALGIA [None]
